FAERS Safety Report 7156411-7 (Version None)
Quarter: 2010Q4

REPORT INFORMATION
  Report Type: 
  Country: None (occurrence: None)
  Receive Date: 20101214
  Receipt Date: 20101206
  Transmission Date: 20110411
  Serious: Yes (Hospitalization)
  Sender: FDA-Public Use
  Company Number: IT-ROCHE-746597

PATIENT
  Sex: Female

DRUGS (13)
  1. ROACTEMRA [Suspect]
     Route: 042
     Dates: start: 20100407, end: 20100407
  2. ROACTEMRA [Suspect]
     Route: 042
     Dates: start: 20100507
  3. METHOTREXATE [Concomitant]
     Dosage: FREQUENCY: 4 DOSES X 1/ WEEK.
     Route: 048
     Dates: start: 20100407
  4. FOLIN [Concomitant]
     Route: 048
     Dates: start: 20100407
  5. DELTACORTENE [Concomitant]
     Route: 048
     Dates: start: 20100407
  6. MEPRAL [Concomitant]
     Route: 048
     Dates: start: 20100407
  7. GAVISCON [Concomitant]
     Dosage: FREQUENCY: DAILY.
     Route: 048
     Dates: start: 20100407
  8. TRIATEC [Concomitant]
     Route: 048
     Dates: start: 20100407
  9. LENDORMIN [Concomitant]
     Indication: INSOMNIA
     Route: 048
     Dates: start: 20100407
  10. LAROXYL [Concomitant]
     Route: 048
     Dates: start: 20100407
  11. ASPIRIN [Concomitant]
     Route: 048
     Dates: start: 20100407
  12. AULIN [Concomitant]
     Route: 048
     Dates: start: 20100407
  13. TACHIPIRINA [Concomitant]
     Route: 048
     Dates: start: 20100407

REACTIONS (2)
  - MIGRAINE WITH AURA [None]
  - SENSORIMOTOR DISORDER [None]
